FAERS Safety Report 9913791 (Version 3)
Quarter: 2014Q1

REPORT INFORMATION
  Report Type: Spontaneous
  Country: CA (occurrence: CA)
  Receive Date: 20140220
  Receipt Date: 20140328
  Transmission Date: 20141002
  Serious: Yes (Hospitalization)
  Sender: FDA-Public Use
  Company Number: CA-BAXTER-2014BAX007807

PATIENT
  Age: 33 Year
  Sex: Male

DRUGS (2)
  1. DIANEAL PD4 SOLUTION WITH 1.5% DEXTROSE AND 2.5 MEQ/L CALCIUM [Suspect]
     Indication: RENAL FAILURE
     Route: 033
     Dates: start: 201309
  2. EXTRANEAL [Suspect]
     Indication: RENAL FAILURE
     Route: 033
     Dates: start: 201309

REACTIONS (1)
  - Coronary artery occlusion [Recovered/Resolved]
